FAERS Safety Report 14075094 (Version 2)
Quarter: 2017Q4

REPORT INFORMATION
  Report Type: Spontaneous
  Country: NL (occurrence: NL)
  Receive Date: 20171011
  Receipt Date: 20171012
  Transmission Date: 20180321
  Serious: Yes (Death, Disabling)
  Sender: FDA-Public Use
  Company Number: NL-PFIZER INC-13758

PATIENT
  Age: 21 Year
  Sex: Female

DRUGS (3)
  1. ETOPOSIDE. [Suspect]
     Active Substance: ETOPOSIDE
     Indication: MEDULLOBLASTOMA
     Dosage: 100 MG/M2, CYCLIC (DAILY FOR 3 DAYS)
     Route: 065
  2. CARBOPLATIN. [Suspect]
     Active Substance: CARBOPLATIN
     Indication: MEDULLOBLASTOMA
     Dosage: 500 MG/M2, CYCLIC (DAILY FOR 3 DAYS)
     Route: 065
  3. THIOTEPA. [Suspect]
     Active Substance: THIOTEPA
     Indication: MEDULLOBLASTOMA
     Dosage: 300 MG/M2, CYCLIC (DAILY FOR 3 DAYS.)
     Route: 065

REACTIONS (2)
  - Encephalopathy [Fatal]
  - Sepsis [Unknown]
